FAERS Safety Report 22018929 (Version 2)
Quarter: 2023Q1

REPORT INFORMATION
  Report Type: Spontaneous
  Country: MX (occurrence: MX)
  Receive Date: 20230222
  Receipt Date: 20230302
  Transmission Date: 20230417
  Serious: Yes (Other)
  Sender: FDA-Public Use
  Company Number: MX-ROCHE-3279314

PATIENT
  Age: 91 Year
  Sex: Male

DRUGS (2)
  1. MIRCERA [Suspect]
     Active Substance: METHOXY POLYETHYLENE GLYCOL-EPOETIN BETA
     Indication: Nephrogenic anaemia
     Route: 058
     Dates: start: 2022
  2. MIRCERA [Suspect]
     Active Substance: METHOXY POLYETHYLENE GLYCOL-EPOETIN BETA
     Route: 058
     Dates: start: 202209

REACTIONS (7)
  - Diabetes mellitus [Unknown]
  - Immunodeficiency [Unknown]
  - Cardiac disorder [Unknown]
  - Ill-defined disorder [Unknown]
  - Influenza [Unknown]
  - Haemoglobin decreased [Unknown]
  - Drug ineffective [Unknown]

NARRATIVE: CASE EVENT DATE: 20220101
